FAERS Safety Report 7328254-2 (Version None)
Quarter: 2011Q1

REPORT INFORMATION
  Report Type: 
  Country: None (occurrence: None)
  Receive Date: 20110303
  Receipt Date: 20110217
  Transmission Date: 20110831
  Serious: Yes (Other)
  Sender: FDA-Public Use
  Company Number: ES-RANBAXY-2011RR-41825

PATIENT
  Age: 61 Year
  Sex: Female

DRUGS (2)
  1. TERAZOSINA RANBAXY 5 MG COMPRIMIDOS EFG [Suspect]
     Indication: HYPOTONIC URINARY BLADDER
     Dosage: 5 MG, QD
     Route: 048
     Dates: start: 20101201, end: 20110101
  2. TERAZOSIN KERN PHARMA 5MG [Concomitant]
     Dosage: 5 MG, QD
     Route: 048

REACTIONS (1)
  - DRUG INEFFECTIVE [None]
